FAERS Safety Report 23327180 (Version 1)
Quarter: 2023Q4

REPORT INFORMATION
  Report Type: Spontaneous
  Country: TW (occurrence: TW)
  Receive Date: 20231221
  Receipt Date: 20231221
  Transmission Date: 20240109
  Serious: Yes (Death)
  Sender: FDA-Public Use
  Company Number: TW-PFIZER INC-202300438894

PATIENT

DRUGS (1)
  1. KETALAR [Suspect]
     Active Substance: KETAMINE HYDROCHLORIDE
     Dosage: 1 BOTTLE
     Route: 042
     Dates: start: 202311

REACTIONS (3)
  - Respiratory disorder [Fatal]
  - Accidental overdose [Unknown]
  - Product use complaint [Unknown]

NARRATIVE: CASE EVENT DATE: 20230101
